FAERS Safety Report 5918717-6 (Version None)
Quarter: 2008Q4

REPORT INFORMATION
  Report Type: 
  Country: None (occurrence: None)
  Receive Date: 20081015
  Receipt Date: 20080626
  Transmission Date: 20090506
  Serious: No
  Sender: FDA-Public Use
  Company Number: US-ASTRAZENECA-2008UW12880

PATIENT
  Age: 62 Year
  Sex: Male
  Weight: 99.8 kg

DRUGS (4)
  1. SYMBICORT [Suspect]
     Indication: CHRONIC OBSTRUCTIVE PULMONARY DISEASE
     Dosage: 160/4.5 MCG EVERY DAY
     Route: 055
     Dates: start: 20080501
  2. COMBIVENT [Concomitant]
  3. LOPRESSOR [Concomitant]
  4. ZYPREXA [Concomitant]

REACTIONS (2)
  - DYSPHONIA [None]
  - THROAT IRRITATION [None]
